FAERS Safety Report 14011589 (Version 3)
Quarter: 2017Q4

REPORT INFORMATION
  Report Type: Report from Study
  Country: BE (occurrence: BE)
  Receive Date: 20170926
  Receipt Date: 20171027
  Transmission Date: 20180321
  Serious: Yes (Death, Hospitalization, Other)
  Sender: FDA-Public Use
  Company Number: BE-BAYER-2016-212716

PATIENT
  Sex: Male

DRUGS (10)
  1. NEXAVAR [Suspect]
     Active Substance: SORAFENIB
     Indication: HEPATOCELLULAR CARCINOMA
     Dosage: DAILY DOSE 800 MG
     Dates: start: 20161120, end: 2016
  2. NEXAVAR [Suspect]
     Active Substance: SORAFENIB
     Indication: HEPATOCELLULAR CARCINOMA
     Dosage: DAILY DOSE 800 MG
     Dates: start: 20161007, end: 20161108
  3. NEXAVAR [Suspect]
     Active Substance: SORAFENIB
     Indication: HEPATOCELLULAR CARCINOMA
     Dosage: 400 MG DAILY
     Dates: start: 2016, end: 2017
  4. ALDACTONE [Concomitant]
     Active Substance: SPIRONOLACTONE
  5. NEXAVAR [Suspect]
     Active Substance: SORAFENIB
     Indication: HEPATOCELLULAR CARCINOMA
     Dosage: DAILY DOSE 400 MG
     Route: 048
     Dates: start: 20171007
  6. NEXAVAR [Suspect]
     Active Substance: SORAFENIB
     Indication: HEPATOCELLULAR CARCINOMA
     Dosage: DAILY DOSE 400 MG
     Dates: start: 20161111, end: 201611
  7. NEXAVAR [Suspect]
     Active Substance: SORAFENIB
     Indication: HEPATOCELLULAR CARCINOMA
     Dosage: DAILY DOSE 800 MG
     Dates: start: 20170205, end: 2017
  8. NEXAVAR [Suspect]
     Active Substance: SORAFENIB
     Indication: HEPATOCELLULAR CARCINOMA
     Dosage: 400 MG DAILY DOSE
     Dates: start: 20170319
  9. NEXAVAR [Suspect]
     Active Substance: SORAFENIB
     Indication: HEPATOCELLULAR CARCINOMA
     Dosage: DAILY DOSE 800 MG
     Dates: start: 20170608, end: 20170914
  10. NEXAVAR [Suspect]
     Active Substance: SORAFENIB
     Indication: HEPATOCELLULAR CARCINOMA
     Dosage: DAILY DOSE 800 MG
     Dates: start: 201709, end: 20170913

REACTIONS (46)
  - Death [Fatal]
  - Oral mucosal erythema [Unknown]
  - Weight decreased [None]
  - Decreased appetite [None]
  - Palmar-plantar erythrodysaesthesia syndrome [Not Recovered/Not Resolved]
  - Diarrhoea [Not Recovered/Not Resolved]
  - Glossodynia [None]
  - Flatulence [None]
  - Decreased appetite [None]
  - Hypersomnia [Unknown]
  - Haematochezia [None]
  - Somnolence [Not Recovered/Not Resolved]
  - Abdominal pain [None]
  - Constipation [None]
  - Weight decreased [None]
  - Vomiting [None]
  - Diarrhoea [None]
  - Tongue erythema [None]
  - Abdominal pain upper [None]
  - Vomiting [None]
  - Fatigue [None]
  - Diarrhoea [None]
  - Abdominal pain [Recovered/Resolved]
  - Constipation [None]
  - Weight decreased [None]
  - Constipation [None]
  - Palmar-plantar erythrodysaesthesia syndrome [None]
  - Constipation [None]
  - Jaundice [Not Recovered/Not Resolved]
  - Weight increased [None]
  - Confusional state [Not Recovered/Not Resolved]
  - Mucosal inflammation [Unknown]
  - Abdominal pain [None]
  - Hypertension [None]
  - Hypertension [None]
  - Decreased appetite [None]
  - Oropharyngeal discomfort [Unknown]
  - Hypotension [None]
  - Confusional state [Recovered/Resolved]
  - Urinary retention [Unknown]
  - Dehydration [None]
  - Palmar-plantar erythrodysaesthesia syndrome [Not Recovered/Not Resolved]
  - Hypertension [None]
  - Yellow skin [Recovering/Resolving]
  - Fungal infection [None]
  - Palmar-plantar erythrodysaesthesia syndrome [None]

NARRATIVE: CASE EVENT DATE: 20161022
